FAERS Safety Report 15518669 (Version 1)
Quarter: 2018Q4

REPORT INFORMATION
  Report Type: Spontaneous
  Country: US (occurrence: US)
  Receive Date: 20181017
  Receipt Date: 20181017
  Transmission Date: 20190205
  Serious: Yes (Other)
  Sender: FDA-Public Use
  Company Number: US-SHIRE-US201839009

PATIENT
  Sex: Female

DRUGS (1)
  1. GAMMAGARD LIQUID [Suspect]
     Active Substance: HUMAN IMMUNOGLOBULIN G
     Indication: PRODUCT USED FOR UNKNOWN INDICATION
     Route: 042

REACTIONS (7)
  - Unresponsive to stimuli [Unknown]
  - Hypoaesthesia oral [Unknown]
  - Feeling cold [Unknown]
  - Headache [Unknown]
  - Back pain [Unknown]
  - Tremor [Unknown]
  - Dyspnoea [Unknown]
